FAERS Safety Report 14834958 (Version 2)
Quarter: 2018Q2

REPORT INFORMATION
  Report Type: Spontaneous
  Country: PT (occurrence: PT)
  Receive Date: 20180501
  Receipt Date: 20180508
  Transmission Date: 20180711
  Serious: Yes (Other)
  Sender: FDA-Public Use
  Company Number: PT-TERSERA THERAPEUTICS, LLC-2046942

PATIENT
  Age: 38 Year
  Sex: Female
  Weight: 54 kg

DRUGS (3)
  1. TAMOXIFEN CITRATE. [Concomitant]
     Active Substance: TAMOXIFEN CITRATE
  2. ZOLADEX [Suspect]
     Active Substance: GOSERELIN ACETATE
     Indication: BREAST CANCER
     Route: 058
     Dates: start: 20170503
  3. GOSERRELINA TEVA [Suspect]
     Active Substance: GOSERELIN ACETATE
     Route: 058
     Dates: start: 20170503

REACTIONS (5)
  - Needle issue [Unknown]
  - Product quality issue [Unknown]
  - Pain [Recovering/Resolving]
  - Device expulsion [Unknown]
  - Product substitution issue [Unknown]

NARRATIVE: CASE EVENT DATE: 20180306
